APPROVED DRUG PRODUCT: METFORMIN HYDROCHLORIDE
Active Ingredient: METFORMIN HYDROCHLORIDE
Strength: 850MG
Dosage Form/Route: TABLET;ORAL
Application: A078170 | Product #002
Applicant: GLENMARK PHARMACEUTICALS LTD
Approved: May 23, 2008 | RLD: No | RS: No | Type: DISCN